FAERS Safety Report 4335291-9 (Version None)
Quarter: 2004Q2

REPORT INFORMATION
  Report Type: 
  Country: None (occurrence: None)
  Receive Date: 20040408
  Receipt Date: 20040408
  Transmission Date: 20050107
  Serious: Yes (Other)
  Sender: FDA-Public Use
  Company Number: None

PATIENT
  Age: 63 Year
  Sex: Male
  Weight: 73.8 kg

DRUGS (2)
  1. OXYBUTYNIN [Suspect]
     Indication: BENIGN PROSTATIC HYPERPLASIA
     Dosage: 5 MG, 5 MG HS ORAL
     Route: 048
     Dates: start: 20040130, end: 20040213
  2. GATIFLOXACIN [Concomitant]

REACTIONS (2)
  - PRURITUS [None]
  - RASH [None]
